FAERS Safety Report 16432459 (Version 1)
Quarter: 2019Q2

REPORT INFORMATION
  Report Type: Spontaneous
  Country: JP (occurrence: JP)
  Receive Date: 20190614
  Receipt Date: 20190614
  Transmission Date: 20190711
  Serious: Yes (Hospitalization, Other)
  Sender: FDA-Public Use
  Company Number: PHHY2019JP132047

PATIENT
  Age: 84 Year
  Sex: Female

DRUGS (1)
  1. PREDNISOLONE. [Suspect]
     Active Substance: PREDNISOLONE
     Indication: FACIAL PARALYSIS
     Dosage: 30 MG, QD
     Route: 065

REACTIONS (4)
  - Decreased appetite [Recovered/Resolved]
  - Necrotising oesophagitis [Recovered/Resolved]
  - Strongyloidiasis [Recovered/Resolved]
  - Dysphonia [Recovered/Resolved]
